FAERS Safety Report 6085608-2 (Version None)
Quarter: 2009Q1

REPORT INFORMATION
  Report Type: 
  Country: None (occurrence: None)
  Receive Date: 20090217
  Receipt Date: 20090217
  Transmission Date: 20090719
  Serious: Yes (Life-Threatening)
  Sender: FDA-Public Use
  Company Number: None

PATIENT
  Age: 29 Year
  Sex: Female
  Weight: 92.4 kg

DRUGS (12)
  1. VIRAMUNE [Suspect]
     Indication: HIV INFECTION
     Dosage: 200 MG BID ORAL
     Route: 048
     Dates: start: 20080226, end: 20080729
  2. TRUVADA [Suspect]
     Indication: HIV INFECTION
     Dosage: 300/200 MG QD ORAL
     Route: 048
     Dates: start: 20080226, end: 20080620
  3. COMBIVIR [Suspect]
     Indication: HIV INFECTION
     Dosage: 300/150 MG BID ORAL
     Route: 048
     Dates: start: 20080620, end: 20080729
  4. FLAGYL [Concomitant]
  5. BACTRIM [Concomitant]
  6. VITAMIN B COMPLEX CAP [Concomitant]
  7. ASCORBIC ACID [Concomitant]
  8. PANADO [Concomitant]
  9. METHYL SALICYLATE [Concomitant]
  10. BRUFEN [Concomitant]
  11. ERYTHROMYCIN [Concomitant]
  12. CANEX CREAM [Concomitant]

REACTIONS (13)
  - ABORTION SPONTANEOUS [None]
  - BLOOD ALKALINE PHOSPHATASE INCREASED [None]
  - BLOOD CREATININE DECREASED [None]
  - BLOOD SODIUM DECREASED [None]
  - DRUG EXPOSURE DURING PREGNANCY [None]
  - DYSURIA [None]
  - GENITAL HAEMORRHAGE [None]
  - PREGNANCY [None]
  - RED BLOOD CELL COUNT DECREASED [None]
  - URINARY TRACT INFECTION [None]
  - VAGINAL DISCHARGE [None]
  - VAGINAL HAEMORRHAGE [None]
  - VAGINITIS BACTERIAL [None]
